FAERS Safety Report 5110944-3 (Version None)
Quarter: 2006Q3

REPORT INFORMATION
  Report Type: 
  Country: None (occurrence: None)
  Receive Date: 20060920
  Receipt Date: 20060920
  Transmission Date: 20061208
  Serious: Yes (Life-Threatening)
  Sender: FDA-Public Use
  Company Number: None

PATIENT
  Age: 24 Year
  Sex: Female
  Weight: 81.6475 kg

DRUGS (1)
  1. PROMETHAZINE [Suspect]
     Indication: ABDOMINAL PAIN
     Dosage: 1 8HRS PO
     Route: 048
     Dates: start: 20060917, end: 20060917

REACTIONS (2)
  - DYSPNOEA [None]
  - URTICARIA [None]
